FAERS Safety Report 18916035 (Version 1)
Quarter: 2021Q1

REPORT INFORMATION
  Report Type: Report from Study
  Country: US (occurrence: US)
  Receive Date: 20210219
  Receipt Date: 20210219
  Transmission Date: 20210420
  Serious: Yes (Other)
  Sender: FDA-Public Use
  Company Number: US-TAKEDA-US202023420

PATIENT
  Age: 61 Year
  Sex: Female

DRUGS (1)
  1. HUMAN NORMAL IMMUNOGLOBULIN; LIQUID [Suspect]
     Active Substance: HUMAN IMMUNOGLOBULIN G
     Indication: IMMUNODEFICIENCY COMMON VARIABLE
     Route: 042

REACTIONS (4)
  - COVID-19 pneumonia [Unknown]
  - Dyspnoea [Unknown]
  - Inappropriate schedule of product administration [Unknown]
  - Malaise [Unknown]

NARRATIVE: CASE EVENT DATE: 201811
